FAERS Safety Report 19458638 (Version 1)
Quarter: 2021Q2

REPORT INFORMATION
  Report Type: Spontaneous
  Country: US (occurrence: US)
  Receive Date: 20210624
  Receipt Date: 20210624
  Transmission Date: 20210717
  Serious: Yes (Other)
  Sender: FDA-Public Use
  Company Number: NVSC2021US138532

PATIENT
  Sex: Female

DRUGS (4)
  1. CARBOPLATIN. [Suspect]
     Active Substance: CARBOPLATIN
     Indication: BRAF V600E MUTATION POSITIVE
  2. VINCRISTINE [Suspect]
     Active Substance: VINCRISTINE
     Indication: ASTROCYTOMA MALIGNANT
     Dosage: UNK
     Route: 065
     Dates: start: 20191122, end: 20201127
  3. CARBOPLATIN. [Suspect]
     Active Substance: CARBOPLATIN
     Indication: ASTROCYTOMA MALIGNANT
     Dosage: UNK
     Route: 065
     Dates: start: 20191122, end: 20201127
  4. VINCRISTINE [Suspect]
     Active Substance: VINCRISTINE
     Indication: BRAF V600E MUTATION POSITIVE

REACTIONS (2)
  - Astrocytoma malignant [Unknown]
  - Malignant neoplasm progression [Unknown]

NARRATIVE: CASE EVENT DATE: 20210611
